FAERS Safety Report 7761864-7 (Version None)
Quarter: 2011Q3

REPORT INFORMATION
  Report Type: 
  Country: None (occurrence: None)
  Receive Date: 20110915
  Receipt Date: 20110808
  Transmission Date: 20111222
  Serious: Yes (Death, Hospitalization, Other)
  Sender: FDA-Public Use
  Company Number: 2010110018

PATIENT
  Age: 75 Year
  Sex: Female

DRUGS (10)
  1. NABILONE (NABILONE) [Suspect]
     Dates: start: 20100913, end: 20100915
  2. SCOPOLAMINE [Concomitant]
  3. DECADRON [Suspect]
     Dates: start: 20101108, end: 20101112
  4. GRAVOL (DIMEHYDRINATE) [Concomitant]
  5. IPILIMUMAB (IPILIMUMAB) [Suspect]
     Indication: MALIGNANT MELANOMA
     Dosage: 150 MG (150 MG, 1 IN 1 D), IV
     Route: 042
     Dates: start: 20100914, end: 20100914
  6. DILAUDID (HYDROMORHONE HCL) [Concomitant]
  7. MAXERAN (METOCLOPRAMIDE HCL) [Concomitant]
  8. TYLENOL (ACETMINOPHEN) [Concomitant]
  9. METFORMIN HCL [Concomitant]
  10. CRESTOR [Concomitant]

REACTIONS (12)
  - HAEMORRHAGIC CEREBRAL INFARCTION [None]
  - VASOGENIC CEREBRAL OEDEMA [None]
  - COMA [None]
  - CHEYNE-STOKES RESPIRATION [None]
  - METASTASES TO CENTRAL NERVOUS SYSTEM [None]
  - LETHARGY [None]
  - OEDEMA PERIPHERAL [None]
  - GENERAL PHYSICAL HEALTH DETERIORATION [None]
  - RESPIRATION ABNORMAL [None]
  - PNEUMONIA [None]
  - HYPOPHAGIA [None]
  - NEOPLASM PROGRESSION [None]
